FAERS Safety Report 9257398 (Version 1)
Quarter: 2013Q2

REPORT INFORMATION
  Report Type: Spontaneous
  Country: US (occurrence: None)
  Receive Date: 20130424
  Receipt Date: 20130424
  Transmission Date: 20140414
  Serious: No
  Sender: FDA-Public Use
  Company Number: None

PATIENT
  Age: 47 Year
  Sex: Female
  Weight: 86.8 kg

DRUGS (1)
  1. ERYTHROMYCIN [Suspect]
     Dosage: 1 UNITS EVERY DAY EYE
     Dates: start: 20130115, end: 20130122

REACTIONS (1)
  - Rash [None]
